FAERS Safety Report 11802743 (Version 1)
Quarter: 2015Q4

REPORT INFORMATION
  Report Type: Spontaneous
  Country: US (occurrence: US)
  Receive Date: 20151204
  Receipt Date: 20151204
  Transmission Date: 20160305
  Serious: Yes (Hospitalization, Other)
  Sender: FDA-Public Use
  Company Number: US-BEH-2014045368

PATIENT
  Age: 43 Year
  Sex: Female
  Weight: 68 kg

DRUGS (13)
  1. BERINERT [Suspect]
     Active Substance: HUMAN C1-ESTERASE INHIBITOR
     Route: 042
     Dates: start: 20140927
  2. FIRAZYR [Suspect]
     Active Substance: ICATIBANT ACETATE
     Dosage: X2, 30 MG/3 ML
     Route: 058
     Dates: start: 20141005, end: 20141005
  3. BERINERT [Suspect]
     Active Substance: HUMAN C1-ESTERASE INHIBITOR
     Route: 042
     Dates: start: 20141001, end: 20141001
  4. BERINERT [Suspect]
     Active Substance: HUMAN C1-ESTERASE INHIBITOR
     Route: 042
  5. FIRAZYR [Suspect]
     Active Substance: ICATIBANT ACETATE
     Dosage: ONE DOSE, 30 MG/3 ML
     Route: 058
     Dates: start: 20140919, end: 20140919
  6. BERINERT [Suspect]
     Active Substance: HUMAN C1-ESTERASE INHIBITOR
     Indication: HEREDITARY ANGIOEDEMA
     Dosage: STARTED 19-MAR-2014
     Route: 042
     Dates: start: 20140923, end: 20140923
  7. BERINERT [Suspect]
     Active Substance: HUMAN C1-ESTERASE INHIBITOR
     Dosage: SINCE FEB-2014
     Route: 042
  8. FIRAZYR [Suspect]
     Active Substance: ICATIBANT ACETATE
     Dosage: 30 MG/3 ML
     Route: 058
     Dates: start: 20140929, end: 20140929
  9. BERINERT [Suspect]
     Active Substance: HUMAN C1-ESTERASE INHIBITOR
     Route: 042
     Dates: start: 20141003, end: 20141003
  10. FIRAZYR [Suspect]
     Active Substance: ICATIBANT ACETATE
     Dosage: 30 MG/3 ML
     Route: 058
     Dates: start: 20140923, end: 20140923
  11. FIRAZYR [Suspect]
     Active Substance: ICATIBANT ACETATE
     Dosage: 30 MG/3 ML
     Route: 058
     Dates: start: 20140922, end: 20140922
  12. FIRAZYR [Suspect]
     Active Substance: ICATIBANT ACETATE
     Dosage: 30 MG/3 ML
     Route: 058
     Dates: start: 20141002, end: 20141002
  13. FIRAZYR [Suspect]
     Active Substance: ICATIBANT ACETATE
     Dosage: 30 MG/3 ML
     Route: 058
     Dates: start: 20140925, end: 20140925

REACTIONS (3)
  - Hereditary angioedema [Recovered/Resolved]
  - Hereditary angioedema [Recovered/Resolved]
  - Hereditary angioedema [Recovered/Resolved]

NARRATIVE: CASE EVENT DATE: 20140919
